FAERS Safety Report 7991731-5 (Version None)
Quarter: 2011Q4

REPORT INFORMATION
  Report Type: 
  Country: None (occurrence: None)
  Receive Date: 20111219
  Receipt Date: 20111215
  Transmission Date: 20120403
  Serious: Yes (Death, Hospitalization, Other)
  Sender: FDA-Public Use
  Company Number: PHHY2011JP95598

PATIENT
  Age: 51 Year
  Sex: Male
  Weight: 60 kg

DRUGS (16)
  1. ALKERAN [Suspect]
     Dosage: 100 MG, DAILY
     Dates: start: 20110403, end: 20110404
  2. NEORAL [Concomitant]
     Dosage: 150 MG, UNK
     Route: 048
     Dates: start: 20110217, end: 20110228
  3. MAGMITT KENEI [Concomitant]
     Dosage: 250 MG, UNK
     Dates: start: 20110107, end: 20110419
  4. FLUDARA [Suspect]
     Dosage: 39 MG, DAILY
     Dates: start: 20110330, end: 20110403
  5. LEVOFLOXACIN [Concomitant]
     Dosage: 500 MG, UNK
     Route: 048
     Dates: start: 20110107, end: 20110519
  6. OMEPRAZOLE [Concomitant]
     Indication: PROPHYLAXIS
     Dosage: 10 MG, UNK
     Route: 048
     Dates: start: 20110107, end: 20110505
  7. BIO THREE [Concomitant]
     Indication: PROPHYLAXIS
     Dosage: 3 DF, UNK
     Route: 048
     Dates: start: 20110107, end: 20110706
  8. SULFAMETHOXAZOLE AND TRIMETHOPRIM [Concomitant]
     Indication: PROPHYLAXIS
     Dosage: 2 DF, UNK
     Route: 048
     Dates: start: 20110107, end: 20110329
  9. PREDNISOLONE [Suspect]
     Dosage: 30 MG, DAILY
     Dates: start: 20110215, end: 20110712
  10. CLARITHROMYCIN [Concomitant]
     Dosage: 800 MG, UNK
     Route: 048
     Dates: start: 20110107, end: 20110519
  11. EXJADE [Suspect]
     Indication: IRON OVERLOAD
     Dosage: 500 MG, DAILY
     Route: 048
     Dates: start: 20110107, end: 20110111
  12. EXJADE [Suspect]
     Dosage: 1000 MG, DAILY
     Dates: start: 20110112, end: 20110329
  13. PROGRAF [Suspect]
     Dosage: 1 MG, DAILY
     Dates: start: 20110405, end: 20110714
  14. ITRACONAZOLE [Concomitant]
     Indication: PROPHYLAXIS
     Dosage: 100 MG, UNK
     Route: 048
     Dates: start: 20110107, end: 20110404
  15. URSO 250 [Concomitant]
     Dosage: 150 MG, UNK
     Route: 048
     Dates: start: 20110107, end: 20110706
  16. ZOLPIDEM [Concomitant]
     Dosage: 5 MG, UNK
     Route: 048
     Dates: start: 20110107, end: 20110706

REACTIONS (9)
  - MENINGITIS [None]
  - NEOPLASM PROGRESSION [None]
  - BONE MARROW FAILURE [None]
  - CYTOMEGALOVIRUS VIRAEMIA [None]
  - SEPSIS [None]
  - GAMMA-GLUTAMYLTRANSFERASE INCREASED [None]
  - NEOPLASM MALIGNANT [None]
  - WHITE BLOOD CELL COUNT DECREASED [None]
  - FEBRILE NEUTROPENIA [None]
